FAERS Safety Report 5660180-7 (Version None)
Quarter: 2008Q1

REPORT INFORMATION
  Report Type: 
  Country: None (occurrence: None)
  Receive Date: 20080310
  Receipt Date: 20080310
  Transmission Date: 20080703
  Serious: Yes (Hospitalization, Disabling, Other)
  Sender: FDA-Public Use
  Company Number: None

PATIENT
  Age: 76 Year
  Sex: Female
  Weight: 58.9676 kg

DRUGS (1)
  1. LEVAQUIN [Suspect]
     Indication: URINARY TRACT INFECTION
     Dosage: 500 MG  1 X DAILY  PO
     Route: 048
     Dates: start: 20080302, end: 20080307

REACTIONS (4)
  - AGITATION [None]
  - HALLUCINATION [None]
  - PARANOIA [None]
  - RESTLESSNESS [None]
